FAERS Safety Report 8059686-5 (Version None)
Quarter: 2012Q1

REPORT INFORMATION
  Report Type: 
  Country: None (occurrence: None)
  Receive Date: 20120120
  Receipt Date: 20120112
  Transmission Date: 20120608
  Serious: Yes (Other)
  Sender: FDA-Public Use
  Company Number: PHEH2011US010146

PATIENT
  Sex: Female

DRUGS (3)
  1. GILENYA [Suspect]
     Indication: MULTIPLE SCLEROSIS
     Dosage: 0.5 MG, QD
     Route: 048
     Dates: start: 20110921, end: 20111221
  2. ZANAFLEX [Concomitant]
     Dosage: 204 MG, QHS
     Route: 048
  3. ENABLEX [Concomitant]

REACTIONS (3)
  - CONVULSION [None]
  - SYNCOPE [None]
  - THROMBOCYTOPENIA [None]
